FAERS Safety Report 19840789 (Version 3)
Quarter: 2022Q3

REPORT INFORMATION
  Report Type: Report from Study
  Country: US (occurrence: US)
  Receive Date: 20210916
  Receipt Date: 20220825
  Transmission Date: 20221026
  Serious: No
  Sender: FDA-Public Use
  Company Number: NVSC2021US208602

PATIENT
  Sex: Female
  Weight: 58.957 kg

DRUGS (5)
  1. TREPROSTINIL [Suspect]
     Active Substance: TREPROSTINIL
     Indication: Pulmonary arterial hypertension
     Dosage: 131 NG/KG/MIN, CONT
     Route: 058
     Dates: start: 20210809
  2. TREPROSTINIL [Suspect]
     Active Substance: TREPROSTINIL
     Dosage: 180 NG/KG/MIN, CONT
     Route: 058
     Dates: start: 20210809
  3. OPSUMIT [Concomitant]
     Active Substance: MACITENTAN
     Indication: Pulmonary arterial hypertension
     Dosage: UNK
     Route: 065
  4. ADCIRCA [Concomitant]
     Active Substance: TADALAFIL
     Indication: Pulmonary arterial hypertension
     Dosage: UNK
     Route: 065
  5. WARFARIN [Concomitant]
     Active Substance: WARFARIN
     Indication: Product used for unknown indication
     Dosage: UNK
     Route: 065

REACTIONS (5)
  - Malaise [Unknown]
  - Exercise tolerance decreased [Unknown]
  - Skin irritation [Unknown]
  - Dyspnoea [Unknown]
  - Device issue [Unknown]
